FAERS Safety Report 6773663 (Version 1)
Quarter: 2020Q3

REPORT INFORMATION
  Report Type: Report from Study
  Country: JP (occurrence: JP)
  Receive Date: 20080929
  Receipt Date: 20080929
  Transmission Date: 20201104
  Serious: Yes (Hospitalization)
  Sender: FDA-Public Use
  Company Number: JP-JNJFOC-20070606452

PATIENT
  Age: 85 Year
  Sex: Male

DRUGS (28)
  1. ZYVOX [Suspect]
     Active Substance: LINEZOLID
     Indication: PROPHYLAXIS
     Route: 065
  2. ISOTONIC SODIUM CHLORIDE SOLUTION [Concomitant]
     Route: 065
  3. ZYVOX [Suspect]
     Active Substance: LINEZOLID
     Indication: PNEUMONIA
     Route: 065
  4. AMINOPHYLLINE. [Concomitant]
     Active Substance: AMINOPHYLLINE
     Route: 065
  5. FINIBAX [Suspect]
     Active Substance: DORIPENEM MONOHYDRATE
     Route: 041
  6. GASTER [Concomitant]
     Active Substance: FAMOTIDINE
     Route: 048
  7. BROMHEXINE HYDROCHLORIDE [Concomitant]
     Active Substance: BROMHEXINE HYDROCHLORIDE
     Route: 048
  8. LANOLIN\PETROLATUM [Concomitant]
     Active Substance: LANOLIN\PETROLATUM
     Route: 065
  9. HIRUDOID [Concomitant]
     Route: 065
  10. ALBUMIN [Concomitant]
     Active Substance: ALBUMIN HUMAN
     Route: 041
  11. ALBUMIN [Concomitant]
     Active Substance: ALBUMIN HUMAN
     Route: 041
  12. PRIMPERAN [Concomitant]
     Active Substance: METOCLOPRAMIDE HYDROCHLORIDE
     Indication: NAUSEA
     Route: 042
  13. FINIBAX [Suspect]
     Active Substance: DORIPENEM MONOHYDRATE
     Indication: PNEUMONIA
     Route: 041
  14. LAC B [Concomitant]
     Route: 048
  15. ALBUMINAR [Concomitant]
     Active Substance: ALBUMIN HUMAN
     Route: 041
  16. FOSMICIN S [Concomitant]
     Indication: PNEUMONIA
     Route: 041
  17. FINIBAX [Suspect]
     Active Substance: DORIPENEM MONOHYDRATE
     Route: 041
  18. ISOTONIC SODIUM CHLORIDE SOLUTION [Concomitant]
     Indication: PNEUMONIA
     Route: 065
  19. HYPEN [ETODOLAC] [Concomitant]
     Active Substance: ETODOLAC
     Route: 048
  20. GLUCOSE [Concomitant]
     Indication: PNEUMONIA
     Route: 041
  21. CEFTAZIDIME. [Concomitant]
     Active Substance: CEFTAZIDIME
     Indication: PNEUMONIA
     Route: 065
  22. LASIX [Concomitant]
     Active Substance: FUROSEMIDE
     Route: 048
  23. MUCOSOLVAN [Concomitant]
     Active Substance: AMBROXOL HYDROCHLORIDE
     Route: 048
  24. ALDACTONE [Concomitant]
     Active Substance: SPIRONOLACTONE
     Route: 048
  25. ACETAMINOPHEN. [Concomitant]
     Active Substance: ACETAMINOPHEN
     Indication: PNEUMONIA
     Route: 048
  26. ACETAMINOPHEN. [Concomitant]
     Active Substance: ACETAMINOPHEN
     Indication: PNEUMONIA
     Route: 065
  27. FIBLAST [Concomitant]
     Route: 065
  28. POVIDONE?IODINE. [Concomitant]
     Active Substance: POVIDONE-IODINE
     Route: 065

REACTIONS (4)
  - Thrombocytopenia [Recovered/Resolved]
  - Erythema [Recovering/Resolving]
  - Nausea [Recovering/Resolving]
  - Renal impairment [Recovering/Resolving]

NARRATIVE: CASE EVENT DATE: 20070309
